FAERS Safety Report 8613621-7 (Version None)
Quarter: 2012Q3

REPORT INFORMATION
  Report Type: 
  Country: None (occurrence: None)
  Receive Date: 20120823
  Receipt Date: 20120809
  Transmission Date: 20120928
  Serious: Yes (Disabling, Other)
  Sender: FDA-Public Use
  Company Number: US-009507513-1208USA004434

PATIENT

DRUGS (3)
  1. FOSAMAX PLUS D [Suspect]
     Dosage: UNK
     Dates: start: 20030101, end: 20090101
  2. FOSAMAX [Suspect]
     Dosage: UNK
     Dates: start: 20030101, end: 20090101
  3. FOSAMAX [Suspect]
     Dosage: UNK
     Dates: start: 20030101, end: 20090101

REACTIONS (2)
  - LOW TURNOVER OSTEOPATHY [None]
  - FEMUR FRACTURE [None]
